FAERS Safety Report 12635825 (Version 1)
Quarter: 2016Q3

REPORT INFORMATION
  Report Type: Spontaneous
  Country: US (occurrence: US)
  Receive Date: 20160809
  Receipt Date: 20160809
  Transmission Date: 20161109
  Serious: No
  Sender: FDA-Public Use
  Company Number: US-PFIZER INC-2016359839

PATIENT
  Age: 64 Year
  Sex: Female

DRUGS (1)
  1. XELJANZ [Suspect]
     Active Substance: TOFACITINIB CITRATE
     Dosage: 5 MG, UNK

REACTIONS (7)
  - Weight increased [Unknown]
  - Feeling abnormal [Unknown]
  - Vision blurred [Unknown]
  - Throat irritation [Unknown]
  - Dizziness [Unknown]
  - Eye discharge [Unknown]
  - Arthralgia [Not Recovered/Not Resolved]
